FAERS Safety Report 5622566-6 (Version None)
Quarter: 2008Q1

REPORT INFORMATION
  Report Type: 
  Country: None (occurrence: None)
  Receive Date: 20080114
  Receipt Date: 20071108
  Transmission Date: 20080703
  Serious: Yes (Other)
  Sender: FDA-Public Use
  Company Number: A03200706439

PATIENT
  Age: 75 Year
  Sex: Male
  Weight: 104.31 kg

DRUGS (7)
  1. PLAVIX [Suspect]
     Indication: CORONARY ARTERIAL STENT INSERTION
     Dosage: ORAL
     Route: 048
     Dates: start: 20070301
  2. FISH OIL [Concomitant]
  3. UBIDECARENONE [Concomitant]
  4. ATENOLOL [Concomitant]
  5. FUROSEMIDE [Concomitant]
  6. POTASSIUM CHLORIDE [Concomitant]
  7. HYDROCODONE BITARTRATE [Concomitant]

REACTIONS (1)
  - CORONARY ARTERY OCCLUSION [None]
